FAERS Safety Report 25135409 (Version 2)
Quarter: 2025Q2

REPORT INFORMATION
  Report Type: Spontaneous
  Country: JP (occurrence: JP)
  Receive Date: 20250328
  Receipt Date: 20250404
  Transmission Date: 20250717
  Serious: No
  Sender: BAXTER
  Company Number: JP-shionogi-202500003290

PATIENT
  Age: 84 Year
  Sex: Female

DRUGS (1)
  1. CYCLOPHOSPHAMIDE [Suspect]
     Active Substance: CYCLOPHOSPHAMIDE
     Indication: Product used for unknown indication
     Route: 065

REACTIONS (3)
  - Gingival hypertrophy [Unknown]
  - Tongue ulceration [Unknown]
  - Mouth ulceration [Unknown]
